FAERS Safety Report 10102696 (Version 1)
Quarter: 2014Q2

REPORT INFORMATION
  Report Type: Spontaneous
  Country: ES (occurrence: ES)
  Receive Date: 20140424
  Receipt Date: 20140424
  Transmission Date: 20141212
  Serious: Yes (Life-Threatening, Hospitalization, Other)
  Sender: FDA-Public Use
  Company Number: ES-WATSON-2014-07946

PATIENT
  Age: 63 Year
  Sex: Male

DRUGS (1)
  1. METFORMIN (UNKNOWN) [Suspect]
     Indication: TYPE 2 DIABETES MELLITUS
     Dosage: 850 MG, Q8H
     Route: 065

REACTIONS (3)
  - Lactic acidosis [Recovered/Resolved]
  - Renal failure chronic [Recovered/Resolved]
  - Labelled drug-disease interaction medication error [Unknown]
